FAERS Safety Report 21763291 (Version 2)
Quarter: 2023Q1

REPORT INFORMATION
  Report Type: Spontaneous
  Country: US (occurrence: US)
  Receive Date: 20221221
  Receipt Date: 20230118
  Transmission Date: 20230417
  Serious: No
  Sender: FDA-Public Use
  Company Number: US-ALKERMES INC.-ALK-2022-006071

PATIENT
  Age: 32 Year
  Sex: Female

DRUGS (1)
  1. VIVITROL [Suspect]
     Active Substance: NALTREXONE
     Indication: Alcoholism
     Dosage: 380 MILLIGRAM, QMO
     Route: 030
     Dates: start: 20221118, end: 20221219

REACTIONS (7)
  - Incorrect route of product administration [Recovered/Resolved]
  - Injection site reaction [Recovered/Resolved]
  - Injection site urticaria [Recovered/Resolved]
  - Injection site pain [Unknown]
  - Injection site induration [Recovered/Resolved]
  - Nausea [Recovered/Resolved]
  - Dizziness [Recovered/Resolved]

NARRATIVE: CASE EVENT DATE: 20221216
